FAERS Safety Report 4634805-9 (Version None)
Quarter: 2005Q2

REPORT INFORMATION
  Report Type: 
  Country: None (occurrence: None)
  Receive Date: 20050412
  Receipt Date: 20050329
  Transmission Date: 20051028
  Serious: Yes (Hospitalization)
  Sender: FDA-Public Use
  Company Number: 2004BI000020

PATIENT
  Age: 60 Year
  Sex: Female
  Weight: 67.1324 kg

DRUGS (22)
  1. AVONEX [Suspect]
     Indication: MULTIPLE SCLEROSIS
     Dosage: 30 UG; QW; IM
     Route: 030
     Dates: start: 19961101, end: 20030101
  2. AVONEX [Suspect]
     Indication: MULTIPLE SCLEROSIS
     Dosage: 30 UG; QW; IM
     Route: 030
     Dates: start: 20030101, end: 20041101
  3. ZOCOR [Concomitant]
  4. ATENOLOL [Concomitant]
  5. EYE DROPS (NOS0 [Concomitant]
  6. NIFEDIPINE [Concomitant]
  7. LORAZEPAM [Concomitant]
  8. PREMARIN [Concomitant]
  9. DIOVAN [Concomitant]
  10. ALEVE [Concomitant]
  11. ASPIRIN [Concomitant]
  12. FOLIC ACID [Concomitant]
  13. IRON [Concomitant]
  14. MULTI-VITAMINS [Concomitant]
  15. XALATAN [Concomitant]
  16. AMBIEN [Concomitant]
  17. MIFEPREX [Concomitant]
  18. ZANAFLEX [Concomitant]
  19. VITAMIN E [Concomitant]
  20. VITAMIN B COMPLEX CAP [Concomitant]
  21. VITAMIN C [Concomitant]
  22. ZOLPIDEM TARTRATE [Concomitant]

REACTIONS (13)
  - BALANCE DISORDER [None]
  - COGNITIVE DISORDER [None]
  - COORDINATION ABNORMAL [None]
  - CORONARY ARTERY DISEASE [None]
  - FALL [None]
  - HYPERLIPIDAEMIA [None]
  - HYPERTENSION [None]
  - INSOMNIA [None]
  - MUSCULOSKELETAL STIFFNESS [None]
  - MYOCARDIAL INFARCTION [None]
  - RADICULOPATHY [None]
  - RESTLESS LEGS SYNDROME [None]
  - SCIATICA [None]
